FAERS Safety Report 7152344-0 (Version None)
Quarter: 2010Q4

REPORT INFORMATION
  Report Type: 
  Country: None (occurrence: None)
  Receive Date: 20101209
  Receipt Date: 20101209
  Transmission Date: 20110411
  Serious: Yes (Other)
  Sender: FDA-Public Use
  Company Number: None

PATIENT
  Age: 67 Year
  Sex: Female
  Weight: 141.9759 kg

DRUGS (1)
  1. ACTOS [Suspect]
     Indication: CEREBROVASCULAR ACCIDENT
     Dosage: 30MG 1XDAILY
     Dates: start: 20080701

REACTIONS (2)
  - CEREBROVASCULAR ACCIDENT [None]
  - CYSTITIS [None]
